FAERS Safety Report 10770994 (Version 1)
Quarter: 2015Q1

REPORT INFORMATION
  Report Type: Spontaneous
  Country: US (occurrence: None)
  Receive Date: 20150206
  Receipt Date: 20150206
  Transmission Date: 20150721
  Serious: No
  Sender: FDA-Public Use
  Company Number: HYP201312-000083

PATIENT
  Age: 13 Year
  Sex: Male
  Weight: 54.43 kg

DRUGS (9)
  1. FLINTSTONES MULTIPLE VITAMINS [Concomitant]
  2. FAMOTIDINE. [Concomitant]
     Active Substance: FAMOTIDINE
  3. RAVICTI [Suspect]
     Active Substance: GLYCEROL PHENYLBUTYRATE
     Indication: UREA CYCLE ENZYME DEFICIENCY
     Route: 048
     Dates: start: 201307
  4. ARGININE [Concomitant]
     Active Substance: ARGININE
  5. POTASSIUM CHLORIDE. [Concomitant]
     Active Substance: POTASSIUM CHLORIDE
  6. L-CARNITINE [Concomitant]
     Active Substance: CARNITINE
  7. VITAFLO ESSENTIAL AMINO ACIDS [Concomitant]
  8. LEVETIRACETAM. [Concomitant]
     Active Substance: LEVETIRACETAM
  9. VITA CHEWS CALCIUM [Concomitant]

REACTIONS (2)
  - Viral infection [None]
  - Rash [None]

NARRATIVE: CASE EVENT DATE: 201312
